FAERS Safety Report 4875376-1 (Version None)
Quarter: 2006Q1

REPORT INFORMATION
  Report Type: 
  Country: None (occurrence: None)
  Receive Date: 20060109
  Receipt Date: 20051109
  Transmission Date: 20060701
  Serious: Yes (Other)
  Sender: FDA-Public Use
  Company Number: US-MERCK-0511USA01524

PATIENT
  Age: 46 Year
  Sex: Male
  Weight: 95 kg

DRUGS (13)
  1. VYTORIN [Suspect]
     Indication: BLOOD CHOLESTEROL INCREASED
     Route: 048
     Dates: start: 20050119, end: 20050317
  2. VYTORIN [Suspect]
     Route: 048
     Dates: start: 20050401, end: 20050912
  3. VYTORIN [Suspect]
     Indication: HYPERLIPIDAEMIA
     Route: 048
     Dates: start: 20050119, end: 20050317
  4. VYTORIN [Suspect]
     Route: 048
     Dates: start: 20050401, end: 20050912
  5. ALTACE [Concomitant]
     Route: 065
  6. WELLBUTRIN [Concomitant]
     Route: 065
  7. TOPAMAX [Concomitant]
     Route: 065
  8. NEXIUM [Concomitant]
     Route: 065
  9. METOPROLOL [Concomitant]
     Route: 065
  10. DICLOFENAC [Concomitant]
     Route: 065
  11. NEURONTIN [Concomitant]
     Route: 065
  12. DILAUDID [Concomitant]
     Indication: BACK PAIN
     Route: 048
     Dates: start: 20050901
  13. METHADONE HCL [Concomitant]
     Indication: BACK PAIN
     Route: 048
     Dates: end: 20050801

REACTIONS (1)
  - BLOOD TRIGLYCERIDES INCREASED [None]
